FAERS Safety Report 6305364-X (Version None)
Quarter: 2009Q3

REPORT INFORMATION
  Report Type: 
  Country: None (occurrence: None)
  Receive Date: 20090807
  Receipt Date: 20090722
  Transmission Date: 20100115
  Serious: Yes (Death)
  Sender: FDA-Public Use
  Company Number: BVT-000276

PATIENT
  Sex: Female

DRUGS (5)
  1. KINERET [Suspect]
     Dates: start: 20031101, end: 20050201
  2. KINERET [Suspect]
     Dates: start: 20050401
  3. METHOTREXATE [Suspect]
     Dates: start: 19890101, end: 20050201
  4. METHOTREXATE [Suspect]
     Dates: start: 20050401
  5. METHOTREXATE [Suspect]
     Dates: start: 20061213

REACTIONS (1)
  - DEATH [None]
